FAERS Safety Report 13553964 (Version 1)
Quarter: 2017Q2

REPORT INFORMATION
  Report Type: Spontaneous
  Country: SA (occurrence: SA)
  Receive Date: 20170517
  Receipt Date: 20170517
  Transmission Date: 20170830
  Serious: Yes (Death, Other)
  Sender: FDA-Public Use
  Company Number: SA-GLAXOSMITHKLINE-SA2017GSK072020

PATIENT
  Sex: Male

DRUGS (2)
  1. DEXAMETHASONE. [Suspect]
     Active Substance: DEXAMETHASONE
     Indication: PRODUCT USED FOR UNKNOWN INDICATION
     Dosage: ONLY ONE DOSE GIVEN ANTENATALLY
     Route: 064
  2. VENTOLIN [Suspect]
     Active Substance: ALBUTEROL SULFATE
     Indication: ASTHMA
     Route: 064

REACTIONS (28)
  - Sepsis [Fatal]
  - Patent ductus arteriosus [Unknown]
  - Blood albumin decreased [Unknown]
  - Hypoventilation [Fatal]
  - Cerebral ventricle dilatation [Unknown]
  - Urine albumin/creatinine ratio increased [Unknown]
  - Nephrotic syndrome [Unknown]
  - Foetal exposure during pregnancy [Unknown]
  - Foetal growth restriction [Unknown]
  - Dysmorphism [Unknown]
  - Red reflex abnormal [Unknown]
  - Clinodactyly [Unknown]
  - Arthropathy [Unknown]
  - Oedema [Unknown]
  - Proteinuria [Unknown]
  - Neurodegenerative disorder [Unknown]
  - Dyskinesia [Unknown]
  - Cataract [Unknown]
  - Decreased activity [Unknown]
  - Oligohydramnios [Unknown]
  - Ear malformation [Unknown]
  - Bradypnoea [Unknown]
  - Nervous system disorder [Unknown]
  - Lissencephaly [Unknown]
  - Foetal distress syndrome [Unknown]
  - Neck deformity [Unknown]
  - Cryptorchism [Unknown]
  - Hypokinesia [Unknown]
